FAERS Safety Report 10658234 (Version 1)
Quarter: 2014Q4

REPORT INFORMATION
  Report Type: Other
  Country: IT (occurrence: IT)
  Receive Date: 20141217
  Receipt Date: 20141217
  Transmission Date: 20150529
  Serious: Yes (Hospitalization)
  Sender: FDA-Public Use
  Company Number: IT-CUBIST PHARMACEUTICALS, INC.-2014CBST001640

PATIENT

DRUGS (1)
  1. CUBICIN [Suspect]
     Active Substance: DAPTOMYCIN
     Indication: STAPHYLOCOCCAL SKIN INFECTION
     Dosage: 1 DF, UNK (CONCENTRATION: 350/100 MG/ML),
     Route: 042
     Dates: start: 20141126, end: 20141126

REACTIONS (1)
  - Anaphylactic shock [Recovered/Resolved]

NARRATIVE: CASE EVENT DATE: 20141126
